FAERS Safety Report 10721145 (Version 2)
Quarter: 2015Q1

REPORT INFORMATION
  Report Type: Spontaneous
  Country: JP (occurrence: JP)
  Receive Date: 20150119
  Receipt Date: 20150205
  Transmission Date: 20150721
  Serious: Yes (Other)
  Sender: FDA-Public Use
  Company Number: JP-SA-2015SA005088

PATIENT
  Age: 63 Year
  Sex: Male

DRUGS (3)
  1. DELLEGRA [Suspect]
     Active Substance: FEXOFENADINE HYDROCHLORIDE\PSEUDOEPHEDRINE HYDROCHLORIDE
     Route: 048
     Dates: start: 20150113, end: 20150115
  2. TRIAZOLAM. [Concomitant]
     Active Substance: TRIAZOLAM
  3. NASIVIN [Concomitant]
     Active Substance: OXYMETAZOLINE

REACTIONS (1)
  - Urinary retention [Recovered/Resolved]

NARRATIVE: CASE EVENT DATE: 20150113
